FAERS Safety Report 10070223 (Version 1)
Quarter: 2014Q2

REPORT INFORMATION
  Report Type: Report from Study
  Country: US (occurrence: US)
  Receive Date: 20140410
  Receipt Date: 20140410
  Transmission Date: 20141212
  Serious: Yes (Other)
  Sender: FDA-Public Use
  Company Number: US-SA-2014SA043575

PATIENT
  Age: 41 Year
  Sex: Male

DRUGS (1)
  1. CAMPATH [Suspect]
     Indication: STEM CELL TRANSPLANT
     Route: 065

REACTIONS (1)
  - Stem cell transplant [Unknown]
